FAERS Safety Report 9492515 (Version 1)
Quarter: 2013Q3

REPORT INFORMATION
  Report Type: Spontaneous
  Country: CA (occurrence: CA)
  Receive Date: 20130830
  Receipt Date: 20130830
  Transmission Date: 20140515
  Serious: Yes (Hospitalization)
  Sender: FDA-Public Use
  Company Number: CA-BIOMARINAP-CA-2013-101392

PATIENT
  Age: 1 Year
  Sex: Male
  Weight: 10.6 kg

DRUGS (1)
  1. ALDURAZYME [Suspect]
     Indication: MUCOPOLYSACCHARIDOSIS I
     Dosage: 5.8 MG, QW
     Route: 042
     Dates: start: 20100610

REACTIONS (4)
  - Graft versus host disease [Recovered/Resolved]
  - Respiratory syncytial virus infection [Recovered/Resolved]
  - Enterovirus infection [Recovered/Resolved]
  - Escherichia bacteraemia [Recovered/Resolved]
